FAERS Safety Report 5835732-1 (Version None)
Quarter: 2008Q3

REPORT INFORMATION
  Report Type: 
  Country: None (occurrence: None)
  Receive Date: 20080806
  Receipt Date: 20080728
  Transmission Date: 20090109
  Serious: Yes (Hospitalization)
  Sender: FDA-Public Use
  Company Number: US-ROCHE-579288

PATIENT
  Age: 32 Year
  Sex: Male

DRUGS (11)
  1. ZENAPAX [Suspect]
     Indication: LIVER TRANSPLANT
     Route: 042
  2. SULFAMETHOXAZOLE AND TRIMETHOPRIM [Suspect]
     Indication: DRUG USE FOR UNKNOWN INDICATION
     Route: 065
  3. VALGANCICLOVIR HCL [Suspect]
     Indication: DRUG USE FOR UNKNOWN INDICATION
     Route: 065
  4. MYCOPHENOLATE MOFETIL [Suspect]
     Indication: DRUG USE FOR UNKNOWN INDICATION
     Route: 065
  5. CLOTRIMAZOLE [Suspect]
     Indication: DRUG USE FOR UNKNOWN INDICATION
     Route: 065
  6. FAMOTIDINE [Suspect]
     Indication: DRUG USE FOR UNKNOWN INDICATION
     Route: 065
  7. DEXAMETHASONE [Suspect]
     Indication: DRUG USE FOR UNKNOWN INDICATION
     Route: 065
  8. SEVELAMER [Suspect]
     Indication: DRUG USE FOR UNKNOWN INDICATION
     Route: 065
  9. URSODIOL [Suspect]
     Indication: DRUG USE FOR UNKNOWN INDICATION
     Route: 065
  10. CALCIUM CARBONATE [Suspect]
     Indication: DRUG USE FOR UNKNOWN INDICATION
     Route: 065
  11. IMMUNOSUPPRESSANTS NOS [Suspect]
     Indication: IMMUNOSUPPRESSANT DRUG THERAPY
     Route: 065

REACTIONS (1)
  - SINUS BRADYCARDIA [None]
